FAERS Safety Report 8919471 (Version 1)
Quarter: 2012Q4

REPORT INFORMATION
  Report Type: 
  Country: DE (occurrence: DE)
  Receive Date: 20121121
  Receipt Date: 20121121
  Transmission Date: 20130627
  Serious: Yes (Death)
  Sender: FDA-Public Use
  Company Number: DE-JNJFOC-20121108884

PATIENT
  Sex: Female

DRUGS (9)
  1. XARELTO [Suspect]
     Indication: ATRIAL FIBRILLATION
     Route: 048
     Dates: start: 20120816
  2. XARELTO [Suspect]
     Indication: CEREBROVASCULAR ACCIDENT PROPHYLAXIS
     Route: 048
     Dates: start: 20120816
  3. MIRTAZAPIN [Concomitant]
     Route: 065
  4. SPIRONOLACTON [Concomitant]
     Route: 065
  5. METOPROLOL [Concomitant]
     Route: 065
  6. TORASEMID [Concomitant]
     Route: 065
  7. PANTOPRAZOLE [Concomitant]
     Route: 065
  8. VENLAFAXINE [Concomitant]
     Route: 065
  9. DIGITOXIN [Concomitant]
     Route: 065

REACTIONS (2)
  - Sudden cardiac death [Fatal]
  - Electrocardiogram QT prolonged [Fatal]
